FAERS Safety Report 12774351 (Version 3)
Quarter: 2018Q1

REPORT INFORMATION
  Report Type: Spontaneous
  Country: SA (occurrence: SA)
  Receive Date: 20160923
  Receipt Date: 20180115
  Transmission Date: 20180508
  Serious: Yes (Life-Threatening, Hospitalization, Other)
  Sender: FDA-Public Use
  Company Number: SA-SUN PHARMACEUTICAL INDUSTRIES LTD-2016RR-124570

PATIENT
  Age: 42 Year
  Sex: Male

DRUGS (2)
  1. PARACETAMOL [Suspect]
     Active Substance: ACETAMINOPHEN
     Indication: BACK PAIN
     Dosage: AS PER NEEDED
     Route: 065
  2. LORMETAZEPAM [Suspect]
     Active Substance: LORMETAZEPAM
     Indication: BACK PAIN
     Dosage: AS PER NEEDED
     Route: 065

REACTIONS (3)
  - Acute kidney injury [Recovered/Resolved]
  - Hepatic encephalopathy [Recovered/Resolved]
  - Toxicity to various agents [Recovered/Resolved]
